FAERS Safety Report 5852864-2 (Version None)
Quarter: 2008Q3

REPORT INFORMATION
  Report Type: 
  Country: None (occurrence: None)
  Receive Date: 20080815
  Receipt Date: 20070830
  Transmission Date: 20090109
  Serious: Yes (Hospitalization)
  Sender: FDA-Public Use
  Company Number: 514491

PATIENT
  Age: 46 Year
  Sex: Male
  Weight: 86.2 kg

DRUGS (19)
  1. CELLCEPT [Suspect]
     Indication: PEMPHIGOID
     Dosage: 2500 MG DAILY 2 PER DAY ORAL
     Route: 048
     Dates: start: 19970101, end: 20070801
  2. CELLCEPT [Suspect]
     Indication: PEMPHIGOID
     Dosage: 2500 MG DAILY 2 PER DAY ORAL
     Route: 048
     Dates: start: 20070801, end: 20070801
  3. ACTONEL [Concomitant]
  4. LIPITOR [Concomitant]
  5. SALAGEN (PILOCARPINE) [Concomitant]
  6. PREDNISONE [Concomitant]
  7. DILANTIN (PHENYTOIN) [Concomitant]
  8. EFFEXOR XR [Concomitant]
  9. KEPPRA [Concomitant]
  10. KLONOPIN [Concomitant]
  11. PROZAC [Concomitant]
  12. RITALIN [Concomitant]
  13. TRAZODONE (TRAZODONE HYDROCHLORIDE) [Concomitant]
  14. DEPAKOTE ER [Concomitant]
  15. NEXIUM [Concomitant]
  16. ENABLEX (DARIFENACIN) [Concomitant]
  17. FLOMAX (*MORNIFLUMATE/*TAMSULOSIN HYDROCHLORIDE) [Concomitant]
  18. ASMANEX TWISTHALER [Concomitant]
  19. SYNTHROID [Concomitant]

REACTIONS (3)
  - ANGER [None]
  - MOOD ALTERED [None]
  - THYROID FUNCTION TEST ABNORMAL [None]
